FAERS Safety Report 15121259 (Version 6)
Quarter: 2018Q4

REPORT INFORMATION
  Report Type: Other
  Country: GB (occurrence: GB)
  Receive Date: 20180709
  Receipt Date: 20180831
  Transmission Date: 20190204
  Serious: Yes (Hospitalization, Other)
  Sender: FDA-Public Use
  Company Number: GB-DIMETHAID UK LIMITED-DIM-002039-2018

PATIENT
  Age: 42 Year
  Sex: Male

DRUGS (6)
  1. TOBRAMYCIN. [Interacting]
     Active Substance: TOBRAMYCIN
     Indication: PSEUDOMONAS INFECTION
     Dosage: 160 MG, TID (9.8 MG/KG/DAY)
     Route: 042
     Dates: start: 200306
  2. DICLOFENAC SODIUM. [Suspect]
     Active Substance: DICLOFENAC SODIUM
     Indication: PLEURITIC PAIN
     Dosage: UNK
     Route: 065
     Dates: start: 200306
  3. COTRIMOXAZOLE [Interacting]
     Active Substance: SULFAMETHOXAZOLE\TRIMETHOPRIM
     Indication: BURKHOLDERIA CEPACIA COMPLEX INFECTION
     Dosage: 1.44 G, BID
     Route: 042
     Dates: start: 200306
  4. COTRIMOXAZOLE [Interacting]
     Active Substance: SULFAMETHOXAZOLE\TRIMETHOPRIM
     Indication: INFECTION
     Dosage: UNK
     Route: 065
  5. COLOMYCIN (COLISTIN SULFATE) [Interacting]
     Active Substance: COLISTIN SULFATE
     Indication: PSEUDOMONAS INFECTION
     Dosage: 2 MEGAUNITS, TID
     Route: 042
     Dates: start: 200306
  6. DICLOFENAC SODIUM. [Interacting]
     Active Substance: DICLOFENAC SODIUM
     Indication: NON-CARDIAC CHEST PAIN

REACTIONS (9)
  - Creatinine renal clearance decreased [Unknown]
  - Ataxia [Unknown]
  - Product use in unapproved indication [Recovered/Resolved]
  - Dizziness [Unknown]
  - Drug interaction [Unknown]
  - Product administered at inappropriate site [Recovered/Resolved]
  - Blood creatinine increased [Unknown]
  - Acute kidney injury [Unknown]
  - Tinnitus [Unknown]

NARRATIVE: CASE EVENT DATE: 2003
